FAERS Safety Report 6202353-0 (Version None)
Quarter: 2009Q2

REPORT INFORMATION
  Report Type: 
  Country: None (occurrence: None)
  Receive Date: 20090518
  Receipt Date: 20090309
  Transmission Date: 20091009
  Serious: No
  Sender: FDA-Public Use
  Company Number: WAES 0903USA01399

PATIENT
  Age: 58 Year
  Sex: Female

DRUGS (7)
  1. JANUVIA [Suspect]
     Indication: TYPE 2 DIABETES MELLITUS
     Dosage: 100 MG / DAILY / PO
     Route: 048
     Dates: start: 20090223
  2. ACTIVELLA [Concomitant]
  3. LIPITOR [Concomitant]
  4. SYNTHROID [Concomitant]
  5. GLIPIZIDE [Concomitant]
  6. LISINOPRIL [Concomitant]
  7. METFORMIN HCL [Concomitant]

REACTIONS (1)
  - CONSTIPATION [None]
